FAERS Safety Report 10239408 (Version 1)
Quarter: 2014Q2

REPORT INFORMATION
  Report Type: Spontaneous
  Country: US (occurrence: None)
  Receive Date: 20140613
  Receipt Date: 20140613
  Transmission Date: 20141212
  Serious: Yes (Disabling)
  Sender: FDA-Public Use
  Company Number: None

PATIENT
  Age: 78 Year
  Sex: Female
  Weight: 49.9 kg

DRUGS (9)
  1. COMBIVENT RESPIMAT [Suspect]
     Indication: ASTHMA
     Dosage: 20MCG/100MCG   2 PUFFS  TWICE DAILY  ORALLY
     Route: 048
     Dates: start: 20140525, end: 20140525
  2. COMBIVENT RESPIMAT [Suspect]
     Indication: CHRONIC OBSTRUCTIVE PULMONARY DISEASE
     Dosage: 20MCG/100MCG   2 PUFFS  TWICE DAILY  ORALLY
     Route: 048
     Dates: start: 20140525, end: 20140525
  3. ASMANEX [Concomitant]
  4. PRO-AIR [Concomitant]
  5. AMOXICILLIN [Concomitant]
  6. NEBULIZER [Concomitant]
  7. OXYGEN [Concomitant]
  8. ADVIL [Concomitant]
  9. COD LIVER OIL [Concomitant]

REACTIONS (3)
  - Dyspnoea [None]
  - Condition aggravated [None]
  - No therapeutic response [None]
